FAERS Safety Report 5946163-8 (Version None)
Quarter: 2008Q4

REPORT INFORMATION
  Report Type: 
  Country: None (occurrence: None)
  Receive Date: 20081110
  Receipt Date: 20081105
  Transmission Date: 20090506
  Serious: Yes (Other)
  Sender: FDA-Public Use
  Company Number: BE-BAYER-200828859GPV

PATIENT
  Age: 20 Year
  Sex: Male
  Weight: 63 kg

DRUGS (3)
  1. CIPROFLOXACIN [Suspect]
     Indication: PYREXIA
     Dosage: UNIT DOSE: 500 MG
     Route: 048
  2. DAFALGAN [Concomitant]
     Indication: PYREXIA
     Route: 048
  3. PROBIOTICAL [Concomitant]
     Indication: PYREXIA
     Route: 048

REACTIONS (5)
  - ANGIOEDEMA [None]
  - DYSPHONIA [None]
  - EYE SWELLING [None]
  - LARYNGEAL STENOSIS [None]
  - LIP SWELLING [None]
